FAERS Safety Report 4479000-1 (Version None)
Quarter: 2004Q4

REPORT INFORMATION
  Report Type: 
  Country: None (occurrence: None)
  Receive Date: 20041015
  Receipt Date: 20040624
  Transmission Date: 20050328
  Serious: Yes (Hospitalization)
  Sender: FDA-Public Use
  Company Number: F01200400036

PATIENT
  Age: 53 Year
  Sex: Male

DRUGS (9)
  1. (OXALIPLATIN) - SOLUTION - 100 MG/M2 [Suspect]
     Indication: PANCREATIC CARCINOMA
     Dosage: 100 MG/M2 ON DAY 2 EVERY TWO WEEKS INTRAVENOUS NOS
     Route: 042
     Dates: start: 20031017, end: 20031017
  2. GEMZAR [Suspect]
     Dosage: 1000 MG/M2 ON DAY 1 EVERY TWO WEEKS INTRAVENOUS NOS
     Route: 042
     Dates: start: 20031016, end: 20031016
  3. VALPROATE SODIUM [Concomitant]
  4. CLOZAPINE [Concomitant]
  5. CREON [Concomitant]
  6. OMEPRAZOLE [Concomitant]
  7. FORLAX(MACROGOL) [Concomitant]
  8. DIANTALVIC [Concomitant]
  9. ALDACTONE [Concomitant]

REACTIONS (6)
  - ANTI-HBS ANTIBODY POSITIVE [None]
  - CHOLESTASIS [None]
  - CHRONIC HEPATITIS [None]
  - CONDITION AGGRAVATED [None]
  - HEPATIC FIBROSIS [None]
  - HEPATIC STEATOSIS [None]
